FAERS Safety Report 9009994 (Version 1)
Quarter: 2013Q1

REPORT INFORMATION
  Report Type: Spontaneous
  Country: US (occurrence: US)
  Receive Date: 20130110
  Receipt Date: 20130110
  Transmission Date: 20140127
  Serious: No
  Sender: FDA-Public Use
  Company Number: US-BRISTOL-MYERS SQUIBB COMPANY-16967572

PATIENT
  Age: 62 Year
  Sex: Male

DRUGS (10)
  1. NULOJIX [Suspect]
     Indication: RENAL TRANSPLANT
     Dates: start: 201112
  2. CELLCEPT [Suspect]
  3. PREDNISONE [Suspect]
  4. BABY ASPIRIN [Concomitant]
  5. CALCIUM CARBONATE [Concomitant]
     Dosage: 1DF = 1 TAB
  6. DIGOXIN [Concomitant]
     Dosage: 1DF = 0.125
  7. LEVAQUIN [Concomitant]
  8. PROTONIX [Concomitant]
  9. COLACE [Concomitant]
  10. NORCO [Concomitant]

REACTIONS (1)
  - Cytomegalovirus infection [Not Recovered/Not Resolved]
